FAERS Safety Report 7600969-8 (Version None)
Quarter: 2011Q3

REPORT INFORMATION
  Report Type: 
  Country: None (occurrence: None)
  Receive Date: 20110711
  Receipt Date: 20110616
  Transmission Date: 20111222
  Serious: Yes (Death)
  Sender: FDA-Public Use
  Company Number: US-GLAXOSMITHKLINE-A0759890A

PATIENT
  Age: 56 Year
  Sex: Female
  Weight: 50 kg

DRUGS (21)
  1. COREG [Concomitant]
  2. ALTACE [Concomitant]
  3. FUROSEMIDE [Concomitant]
  4. TOPROL-XL [Concomitant]
  5. SYNTHROID [Concomitant]
  6. ZOCOR [Concomitant]
  7. LANTUS [Concomitant]
  8. AVANDIA [Suspect]
     Indication: TYPE 2 DIABETES MELLITUS
     Dosage: 4MG PER DAY
     Route: 048
     Dates: start: 20010101
  9. CRESTOR [Concomitant]
  10. ALDACTAZIDE [Concomitant]
  11. QUINAPRIL HCL [Concomitant]
  12. HUMALOG [Concomitant]
  13. HUMULIN R [Concomitant]
  14. VYTORIN [Concomitant]
  15. AVANDAMET [Suspect]
     Indication: PRODUCT USED FOR UNKNOWN INDICATION
     Route: 048
     Dates: start: 20060201, end: 20070517
  16. DIGOXIN [Concomitant]
  17. LANOXIN [Concomitant]
  18. LEVOTHROID [Concomitant]
  19. GLUCOVANCE [Concomitant]
  20. SPIRONOLACTONE [Concomitant]
  21. ACCUPRIL [Concomitant]

REACTIONS (1)
  - MYOCARDIAL INFARCTION [None]
